FAERS Safety Report 6754318-8 (Version None)
Quarter: 2010Q2

REPORT INFORMATION
  Report Type: 
  Country: None (occurrence: None)
  Receive Date: 20100601
  Receipt Date: 20100527
  Transmission Date: 20101027
  Serious: Yes (Death)
  Sender: FDA-Public Use
  Company Number: 2010SP029606

PATIENT
  Age: 40 Year
  Sex: Male

DRUGS (1)
  1. TEMODAL [Suspect]
     Indication: GLIOBLASTOMA MULTIFORME

REACTIONS (3)
  - NEUTROPENIA [None]
  - PNEUMONIA [None]
  - THROMBOCYTOPENIA [None]
